FAERS Safety Report 17618003 (Version 1)
Quarter: 2020Q3

REPORT INFORMATION
  Report Type: Spontaneous
  Country: US (occurrence: US)
  Receive Date: 20200402
  Receipt Date: 20200402
  Transmission Date: 20201105
  Serious: Yes (Hospitalization, Other)
  Sender: FDA-Public Use
  Company Number: US-KOWA-20US000977

PATIENT
  Age: 17 Year
  Sex: Female

DRUGS (8)
  1. METFORMIN [Concomitant]
     Active Substance: METFORMIN HYDROCHLORIDE
     Indication: TYPE 1 DIABETES MELLITUS
  2. SETMELANOTIDE. [Suspect]
     Active Substance: SETMELANOTIDE
     Dosage: 3 MG
  3. PIOGLITAZONE. [Concomitant]
     Active Substance: PIOGLITAZONE
     Indication: INSULIN RESISTANCE
  4. FENOFIBRATE. [Suspect]
     Active Substance: FENOFIBRATE
     Indication: HYPERTRIGLYCERIDAEMIA
  5. METRELEPTIN [Suspect]
     Active Substance: METRELEPTIN
     Indication: BLOOD TRIGLYCERIDES INCREASED
  6. METRELEPTIN [Suspect]
     Active Substance: METRELEPTIN
     Indication: HEPATIC STEATOSIS
  7. SETMELANOTIDE. [Suspect]
     Active Substance: SETMELANOTIDE
     Indication: PRODUCT USED FOR UNKNOWN INDICATION
     Dosage: 1 MG, QD
  8. INSULIN [Concomitant]
     Active Substance: INSULIN NOS
     Indication: TYPE 1 DIABETES MELLITUS
     Dosage: 2.5 IU/KG, QD

REACTIONS (10)
  - Leptin level increased [Unknown]
  - Hypertriglyceridaemia [Unknown]
  - Diabetic ketoacidosis [Unknown]
  - Diabetes mellitus inadequate control [Unknown]
  - Pancreatitis [Unknown]
  - Hypoglycaemia [Unknown]
  - Condition aggravated [Unknown]
  - Autoimmune hepatitis [Unknown]
  - Fat tissue decreased [Unknown]
  - Skin discolouration [Unknown]
